FAERS Safety Report 6389534-0 (Version None)
Quarter: 2009Q4

REPORT INFORMATION
  Report Type: 
  Country: None (occurrence: None)
  Receive Date: 20091003
  Receipt Date: 20090918
  Transmission Date: 20100525
  Serious: Yes (Hospitalization)
  Sender: FDA-Public Use
  Company Number: A-NJ2009-25620

PATIENT
  Age: 34 Year
  Sex: Female

DRUGS (1)
  1. VENTAVIS [Suspect]
     Indication: PULMONARY ARTERIAL HYPERTENSION
     Dosage: 5 UG, 6XDAY, RESPIRATORY
     Route: 055
     Dates: start: 20081221

REACTIONS (3)
  - ACUTE SINUSITIS [None]
  - HYPOXIA [None]
  - TREATMENT NONCOMPLIANCE [None]
